FAERS Safety Report 4467659-4 (Version None)
Quarter: 2004Q4

REPORT INFORMATION
  Report Type: 
  Country: None (occurrence: None)
  Receive Date: 20041004
  Receipt Date: 20041004
  Transmission Date: 20050328
  Serious: Yes (Other)
  Sender: FDA-Public Use
  Company Number: None

PATIENT
  Age: 75 Year
  Sex: Male
  Weight: 74.8435 kg

DRUGS (1)
  1. VIOXX [Suspect]
     Dosage: 1 A DAY
     Dates: start: 20000130, end: 20040930

REACTIONS (1)
  - BLOOD PRESSURE INCREASED [None]
